FAERS Safety Report 6731953-4 (Version None)
Quarter: 2010Q2

REPORT INFORMATION
  Report Type: 
  Country: None (occurrence: None)
  Receive Date: 20100519
  Receipt Date: 20100510
  Transmission Date: 20101027
  Serious: Yes (Hospitalization)
  Sender: FDA-Public Use
  Company Number: DE-ABBOTT-10P-062-0643653-00

PATIENT
  Age: 58 Year
  Sex: Female
  Weight: 58.1 kg

DRUGS (12)
  1. HUMIRA [Suspect]
     Indication: RHEUMATOID ARTHRITIS
     Route: 058
     Dates: start: 20051101, end: 20091201
  2. OLMESARTAN MEDOXOMIL [Concomitant]
     Indication: HYPERTENSION
  3. ARAVA [Concomitant]
     Indication: DRUG USE FOR UNKNOWN INDICATION
     Dates: end: 20091201
  4. PREDNISONE TAB [Concomitant]
     Indication: DRUG USE FOR UNKNOWN INDICATION
  5. AMPICILLIN AND SULBACTAM [Concomitant]
     Indication: DRUG USE FOR UNKNOWN INDICATION
  6. CIPRO [Concomitant]
     Indication: KLEBSIELLA INFECTION
     Dosage: FOR 5 DAYS
  7. CIPRO [Concomitant]
     Dates: end: 20091017
  8. TRAMAL [Concomitant]
     Indication: DRUG USE FOR UNKNOWN INDICATION
  9. PANTOZOL [Concomitant]
     Indication: DRUG USE FOR UNKNOWN INDICATION
  10. ASPIRIN [Concomitant]
     Indication: DRUG USE FOR UNKNOWN INDICATION
  11. ACTONEL [Concomitant]
     Indication: DRUG USE FOR UNKNOWN INDICATION
  12. DEKRISTOL [Concomitant]
     Indication: DRUG USE FOR UNKNOWN INDICATION

REACTIONS (4)
  - DYSARTHRIA [None]
  - GENERAL PHYSICAL HEALTH DETERIORATION [None]
  - ISCHAEMIC STROKE [None]
  - PERSONALITY CHANGE [None]
